FAERS Safety Report 20176929 (Version 7)
Quarter: 2022Q1

REPORT INFORMATION
  Report Type: Spontaneous
  Country: CN (occurrence: CN)
  Receive Date: 20211213
  Receipt Date: 20220128
  Transmission Date: 20220423
  Serious: Yes (Other)
  Sender: FDA-Public Use
  Company Number: CN-NOVARTISPH-NVSC2021CN283551

PATIENT
  Age: 27 Year
  Sex: Male

DRUGS (13)
  1. TOBRADEX [Suspect]
     Active Substance: DEXAMETHASONE\TOBRAMYCIN
     Indication: Meibomian gland dysfunction
     Dosage: 0.006 G, QD (BEFORE GOING TO BED EVERY NIGHT)
     Route: 047
     Dates: start: 20201124
  2. TOBRADEX [Suspect]
     Active Substance: DEXAMETHASONE\TOBRAMYCIN
     Indication: Xerophthalmia
  3. BROMFENAC SODIUM [Concomitant]
     Active Substance: BROMFENAC SODIUM
     Indication: Xerophthalmia
     Dosage: 0.006 G, QD (SPECIFICATION: 5ML: 5MG*1/BOX)
     Route: 047
  4. POLYETHYLENE GLYCOL [Concomitant]
     Active Substance: POLYETHYLENE GLYCOL
     Indication: Xerophthalmia
     Dosage: 0.065 ML, QID (SPECIFICATION: 5ML*1 INJECITON/BOX)
     Route: 047
  5. BOVINE BASIC FIBROBLAST GROWTH FACTOR [Concomitant]
     Indication: Xerophthalmia
     Dosage: 0.06 G, QID (SPECIFICATION: 21000 IU 5G/1)
     Route: 047
  6. ARTIFICIAL TEARS [Concomitant]
     Active Substance: GLYCERIN\HYPROMELLOSES\POLYETHYLENE GLYCOL 400
     Indication: Dry eye
     Dosage: UNK
     Route: 065
  7. ARTIFICIAL TEARS [Concomitant]
     Active Substance: GLYCERIN\HYPROMELLOSES\POLYETHYLENE GLYCOL 400
     Indication: Pruritus
  8. ARTIFICIAL TEARS [Concomitant]
     Active Substance: GLYCERIN\HYPROMELLOSES\POLYETHYLENE GLYCOL 400
     Indication: Ocular discomfort
  9. METHAZOLAMIDE [Concomitant]
     Active Substance: METHAZOLAMIDE
     Indication: Product used for unknown indication
     Dosage: UNK
     Route: 065
     Dates: start: 20201211
  10. BRINZOLAMIDE [Concomitant]
     Active Substance: BRINZOLAMIDE
     Indication: Product used for unknown indication
     Dosage: UNK
     Route: 065
  11. SODIUM HYALURONATE [Concomitant]
     Active Substance: HYALURONATE SODIUM
     Indication: Product used for unknown indication
     Dosage: 5ML:15MG 1 BOX
     Route: 065
  12. ESCULIN [Concomitant]
     Active Substance: ESCULIN
     Indication: Product used for unknown indication
     Dosage: UNK
     Route: 065
  13. DIGITALIS [Concomitant]
     Active Substance: DIGITALIS
     Indication: Product used for unknown indication
     Dosage: 0.4 ML
     Route: 065

REACTIONS (6)
  - Ocular hypertension [Recovered/Resolved]
  - Dry eye [Not Recovered/Not Resolved]
  - Intraocular pressure test abnormal [Recovered/Resolved]
  - Product use in unapproved indication [Unknown]
  - Ocular discomfort [Unknown]
  - Ocular hyperaemia [Unknown]
